FAERS Safety Report 10156232 (Version 1)
Quarter: 2014Q2

REPORT INFORMATION
  Report Type: Spontaneous
  Country: US (occurrence: US)
  Receive Date: 20140507
  Receipt Date: 20140507
  Transmission Date: 20141212
  Serious: No
  Sender: FDA-Public Use
  Company Number: US-009507513-1404USA014588

PATIENT
  Sex: Female

DRUGS (2)
  1. INTRONA [Suspect]
     Indication: MALIGNANT MELANOMA STAGE III
     Dosage: STRENGTH AS 18 MILLION UNIT (1ML), DOSE AS 18 MILLION UNITS/3ML
     Route: 058
     Dates: start: 201402
  2. INTRONA [Suspect]
     Dosage: BEGAN INFUSION OF INTRON A IN 12/2013
     Dates: start: 201312

REACTIONS (2)
  - Pain [Unknown]
  - Injection site erythema [Unknown]
